FAERS Safety Report 4684454-1 (Version None)
Quarter: 2005Q2

REPORT INFORMATION
  Report Type: 
  Country: None (occurrence: None)
  Receive Date: 20050607
  Receipt Date: 20050601
  Transmission Date: 20051028
  Serious: Yes (Life-Threatening, Hospitalization)
  Sender: FDA-Public Use
  Company Number: PHRM2005FR01710

PATIENT
  Age: 53 Year
  Sex: Female

DRUGS (1)
  1. SANDIMMUNE [Suspect]
     Indication: BONE MARROW TRANSPLANT
     Dosage: 150 MG, BID
     Dates: start: 20050301

REACTIONS (5)
  - CARDIAC FAILURE [None]
  - CHOLESTASIS [None]
  - HAEMOLYTIC URAEMIC SYNDROME [None]
  - JAUNDICE [None]
  - RENAL FAILURE [None]
